FAERS Safety Report 7787749-8 (Version None)
Quarter: 2011Q3

REPORT INFORMATION
  Report Type: 
  Country: None (occurrence: None)
  Receive Date: 20110929
  Receipt Date: 20110922
  Transmission Date: 20111222
  Serious: Yes (Death, Hospitalization)
  Sender: FDA-Public Use
  Company Number: JP-BAXTER-2011BH023216

PATIENT
  Age: 74 Year
  Sex: Male

DRUGS (18)
  1. CYCLOPHOSPHAMIDE [Suspect]
     Indication: OFF LABEL USE
     Route: 065
     Dates: start: 20101116, end: 20110308
  2. NEORAL [Suspect]
     Indication: IDIOPATHIC PULMONARY FIBROSIS
     Route: 048
     Dates: end: 20110313
  3. ACTONEL [Concomitant]
     Indication: PROPHYLAXIS
     Route: 048
     Dates: end: 20110308
  4. AMARYL [Concomitant]
     Indication: PRODUCT USED FOR UNKNOWN INDICATION
     Route: 048
     Dates: end: 20110308
  5. HANP [Concomitant]
     Indication: PRODUCT USED FOR UNKNOWN INDICATION
     Route: 065
     Dates: start: 20110309, end: 20110316
  6. FAMOTIDINE [Concomitant]
     Indication: PROPHYLAXIS
     Route: 048
     Dates: end: 20100223
  7. RABEPRAZOLE SODIUM [Concomitant]
     Indication: PROPHYLAXIS
     Route: 048
     Dates: start: 20100224, end: 20110312
  8. AMLODIPINE [Concomitant]
     Indication: PRODUCT USED FOR UNKNOWN INDICATION
     Route: 048
     Dates: end: 20110308
  9. PREDNISOLONE [Suspect]
     Indication: IDIOPATHIC PULMONARY FIBROSIS
     Route: 048
     Dates: end: 20110308
  10. BACTRIM [Concomitant]
     Indication: PROPHYLAXIS
     Route: 048
     Dates: end: 20110308
  11. MAGNESIUM SULFATE [Concomitant]
     Indication: PROPHYLAXIS
     Route: 048
     Dates: start: 20091217, end: 20110308
  12. CIPROFLOXACIN HCL [Concomitant]
     Indication: IDIOPATHIC PULMONARY FIBROSIS
     Route: 065
     Dates: start: 20110309, end: 20110315
  13. CYCLOPHOSPHAMIDE [Suspect]
     Indication: IDIOPATHIC PULMONARY FIBROSIS
     Route: 065
     Dates: start: 20101116, end: 20110308
  14. PIRFENIDONE [Suspect]
     Indication: IDIOPATHIC PULMONARY FIBROSIS
     Route: 048
     Dates: start: 20090420, end: 20110313
  15. ATORVASTATIN CALCIUM [Concomitant]
     Indication: PRODUCT USED FOR UNKNOWN INDICATION
     Route: 048
     Dates: end: 20110308
  16. PIOGLITAZONE HYDROCHLORIDE [Concomitant]
     Indication: PRODUCT USED FOR UNKNOWN INDICATION
     Route: 048
     Dates: end: 20110308
  17. MIYA-BM [Concomitant]
     Indication: PROPHYLAXIS
     Route: 048
     Dates: start: 20091021, end: 20091112
  18. POLAPREZINC [Concomitant]
     Indication: PROPHYLAXIS
     Route: 048
     Dates: start: 20101214, end: 20110308

REACTIONS (11)
  - WHITE BLOOD CELL COUNT INCREASED [None]
  - ANXIETY [None]
  - IDIOPATHIC PULMONARY FIBROSIS [None]
  - AZOTAEMIA [None]
  - CARDIAC FAILURE ACUTE [None]
  - INSOMNIA [None]
  - C-REACTIVE PROTEIN INCREASED [None]
  - UPPER RESPIRATORY TRACT INFECTION [None]
  - NEUROGENIC BLADDER [None]
  - HERPES ZOSTER [None]
  - PNEUMONIA [None]
